FAERS Safety Report 14122447 (Version 1)
Quarter: 2017Q4

REPORT INFORMATION
  Report Type: Spontaneous
  Country: US (occurrence: None)
  Receive Date: 20171024
  Receipt Date: 20171024
  Transmission Date: 20180321
  Serious: Yes (Other)
  Sender: FDA-Public Use
  Company Number: None

PATIENT
  Age: 74 Year
  Sex: Female
  Weight: 47.17 kg

DRUGS (10)
  1. CARVEDILOL. [Concomitant]
     Active Substance: CARVEDILOL
  2. AMLODIPINE [Concomitant]
     Active Substance: AMLODIPINE BESYLATE
  3. MELATONIN [Concomitant]
     Active Substance: MELATONIN
  4. ALPRAZOLAM. [Concomitant]
     Active Substance: ALPRAZOLAM
  5. OMEPRAZOLE. [Concomitant]
     Active Substance: OMEPRAZOLE
  6. BUDESONIDE. [Concomitant]
     Active Substance: BUDESONIDE
  7. TRAMADOL. [Concomitant]
     Active Substance: TRAMADOL
  8. ISOSORBIDE. [Concomitant]
     Active Substance: ISOSORBIDE
  9. REMERON [Concomitant]
     Active Substance: MIRTAZAPINE
  10. LYRICA [Suspect]
     Active Substance: PREGABALIN
     Indication: PAIN
     Dosage: 50 MG 1 PILL TWICE DAILY MOUTH
     Route: 048
     Dates: start: 20170805, end: 20170809

REACTIONS (3)
  - Movement disorder [None]
  - Asthenia [None]
  - Memory impairment [None]

NARRATIVE: CASE EVENT DATE: 20170808
